FAERS Safety Report 6811464-8 (Version None)
Quarter: 2010Q2

REPORT INFORMATION
  Report Type: 
  Country: None (occurrence: None)
  Receive Date: 20100629
  Receipt Date: 20100629
  Transmission Date: 20101027
  Serious: Yes (Other)
  Sender: FDA-Public Use
  Company Number: None

PATIENT
  Sex: Male

DRUGS (1)
  1. BETASERON [Suspect]
     Indication: MULTIPLE SCLEROSIS
     Dosage: 0.25 MG EVERY OTHER DAY SQ ; SEVERAL YEARS
     Route: 058

REACTIONS (4)
  - APATHY [None]
  - DEPRESSIVE SYMPTOM [None]
  - IRRITABILITY [None]
  - NEGATIVE THOUGHTS [None]
